FAERS Safety Report 9434363 (Version 1)
Quarter: 2013Q3

REPORT INFORMATION
  Report Type: Spontaneous
  Country: CO (occurrence: CO)
  Receive Date: 20130801
  Receipt Date: 20130801
  Transmission Date: 20140515
  Serious: Yes (Other)
  Sender: FDA-Public Use
  Company Number: CO-JNJFOC-20130715392

PATIENT
  Sex: Female
  Weight: 32 kg

DRUGS (2)
  1. REMICADE [Suspect]
     Indication: PSORIASIS
     Route: 042
     Dates: start: 20100610, end: 20121109
  2. METHOTREXATE [Concomitant]
     Indication: PSORIASIS
     Route: 065

REACTIONS (1)
  - Underweight [Unknown]
